FAERS Safety Report 6287068-5 (Version None)
Quarter: 2009Q3

REPORT INFORMATION
  Report Type: 
  Country: None (occurrence: None)
  Receive Date: 20090728
  Receipt Date: 20071203
  Transmission Date: 20100115
  Serious: Yes (Hospitalization, Other)
  Sender: FDA-Public Use
  Company Number: DE-PFIZER INC-2007102496

PATIENT
  Age: 79 Year

DRUGS (1)
  1. PREGABALIN [Suspect]
     Indication: BACK PAIN
     Dosage: UNK

REACTIONS (4)
  - ENCEPHALOPATHY [None]
  - GRAND MAL CONVULSION [None]
  - MYOCLONIC EPILEPSY [None]
  - STATUS EPILEPTICUS [None]
